FAERS Safety Report 11448514 (Version 1)
Quarter: 2015Q3

REPORT INFORMATION
  Report Type: Spontaneous
  Country: IT (occurrence: IT)
  Receive Date: 20150902
  Receipt Date: 20150902
  Transmission Date: 20151125
  Serious: Yes (Other)
  Sender: FDA-Public Use
  Company Number: IT-GLAXOSMITHKLINE-IT2015GSK125181

PATIENT
  Age: 75 Year
  Sex: Male

DRUGS (5)
  1. TAVOR [Suspect]
     Active Substance: LORAZEPAM
     Dosage: 4 UNK, UNK
     Route: 048
     Dates: start: 20130502, end: 20130502
  2. WELLBUTRIN [Suspect]
     Active Substance: BUPROPION HYDROCHLORIDE
     Indication: PRODUCT USED FOR UNKNOWN INDICATION
     Dosage: 9 G, UNK
     Route: 048
     Dates: start: 20130502, end: 20130502
  3. CARDIOASPIRIN [Concomitant]
     Active Substance: ASPIRIN
     Dosage: 100 MG, UNK
     Route: 048
  4. VALPRESSION [Concomitant]
     Active Substance: VALSARTAN
     Dosage: 160 MG, UNK
     Route: 048
  5. SEROQUEL [Suspect]
     Active Substance: QUETIAPINE FUMARATE
     Indication: PRODUCT USED FOR UNKNOWN INDICATION
     Dosage: 60 UNK, UNK
     Route: 048
     Dates: start: 20130502, end: 20130502

REACTIONS (3)
  - Suicide attempt [Recovered/Resolved]
  - Sopor [Recovered/Resolved]
  - Poisoning deliberate [Recovered/Resolved]

NARRATIVE: CASE EVENT DATE: 20130502
